FAERS Safety Report 16363695 (Version 3)
Quarter: 2019Q3

REPORT INFORMATION
  Report Type: Spontaneous
  Country: BR (occurrence: BR)
  Receive Date: 20190528
  Receipt Date: 20190809
  Transmission Date: 20191004
  Serious: Yes (Other)
  Sender: FDA-Public Use
  Company Number: BR-PFIZER INC-2019218712

PATIENT
  Sex: Male

DRUGS (1)
  1. CAVERJECT [Suspect]
     Active Substance: ALPROSTADIL
     Dosage: UNK

REACTIONS (7)
  - Depressive symptom [Not Recovered/Not Resolved]
  - Injection site discolouration [Unknown]
  - Dyspareunia [Unknown]
  - Fear of injection [Not Recovered/Not Resolved]
  - Feeling abnormal [Unknown]
  - Foreign body in reproductive tract [Not Recovered/Not Resolved]
  - Needle issue [Not Recovered/Not Resolved]
